FAERS Safety Report 13685613 (Version 1)
Quarter: 2017Q2

REPORT INFORMATION
  Report Type: Spontaneous
  Country: US (occurrence: US)
  Receive Date: 20170623
  Receipt Date: 20170623
  Transmission Date: 20170830
  Serious: No
  Sender: FDA-Public Use
  Company Number: US-TARO-2016TAR00909

PATIENT
  Age: 81 Year
  Sex: Female

DRUGS (2)
  1. CETIRIZINE HCL [Suspect]
     Active Substance: CETIRIZINE HYDROCHLORIDE
     Indication: SKIN DISORDER
     Dosage: 2.5 MG, ONCE
     Route: 048
     Dates: start: 20161024, end: 20161024
  2. ZANTAC [Concomitant]
     Active Substance: RANITIDINE HYDROCHLORIDE
     Dosage: 2 DOSAGE UNITS, UNK

REACTIONS (3)
  - Off label use [Recovered/Resolved]
  - Oesophageal pain [Recovered/Resolved]
  - Somnolence [Recovered/Resolved]

NARRATIVE: CASE EVENT DATE: 20161024
